FAERS Safety Report 8856187 (Version 1)
Quarter: 2012Q4

REPORT INFORMATION
  Report Type: 
  Country: US (occurrence: US)
  Receive Date: 20121023
  Receipt Date: 20121023
  Transmission Date: 20130627
  Serious: No
  Sender: FDA-Public Use
  Company Number: US-AMGEN-USASP2012057789

PATIENT
  Age: 48 Year
  Sex: Female
  Weight: 76.19 kg

DRUGS (13)
  1. ENBREL [Suspect]
     Indication: PRODUCT USED FOR UNKNOWN INDICATION
     Dosage: 50 mg, qwk
     Route: 058
  2. METHOTREXATE [Concomitant]
     Dosage: 2.5 mg, UNK
  3. NICOTINE [Concomitant]
     Dosage: 2 mg, UNK
  4. MULTIVITAMIN                       /00097801/ [Concomitant]
     Dosage: UNK
  5. IRON [Concomitant]
     Dosage: 25 mg, UNK
  6. FISH OIL [Concomitant]
     Dosage: UNK
  7. FLAXSEED OIL [Concomitant]
     Dosage: UNK
  8. TURMERIC                           /01079602/ [Concomitant]
     Dosage: 500 mg, UNK
  9. FOLIC ACID [Concomitant]
     Dosage: 800 mug, UNK
  10. PREDNISONE [Concomitant]
     Dosage: 2.5 mg, UNK
  11. TYLENOL /00020001/ [Concomitant]
     Dosage: 325 mg, UNK
  12. CLARITIN                           /00413701/ [Concomitant]
     Dosage: 10 mg, UNK
  13. BENADRYL                           /00000402/ [Concomitant]
     Dosage: 25 mg, UNK

REACTIONS (2)
  - Rash erythematous [Unknown]
  - Rash pruritic [Unknown]
